FAERS Safety Report 4519820-8 (Version None)
Quarter: 2004Q4

REPORT INFORMATION
  Report Type: 
  Country: None (occurrence: None)
  Receive Date: 20041207
  Receipt Date: 20041103
  Transmission Date: 20050328
  Serious: Yes (Hospitalization)
  Sender: FDA-Public Use
  Company Number: BR-JNJFOC-20041101705

PATIENT
  Sex: Male

DRUGS (1)
  1. TYLEX [Suspect]
     Indication: POST PROCEDURAL PAIN
     Route: 049
     Dates: start: 20041025, end: 20041026

REACTIONS (4)
  - ABDOMINAL PAIN UPPER [None]
  - NAUSEA [None]
  - VOMITING [None]
  - WOUND [None]
